FAERS Safety Report 17300049 (Version 1)
Quarter: 2020Q1

REPORT INFORMATION
  Report Type: Spontaneous
  Country: US (occurrence: US)
  Receive Date: 20200103
  Receipt Date: 20200103
  Transmission Date: 20200409
  Serious: Yes (Death)
  Sender: FDA-Public Use
  Company Number: None

PATIENT
  Age: 42 Year

DRUGS (1)
  1. CAPECITABINE. [Suspect]
     Active Substance: CAPECITABINE
     Indication: BONE CANCER
     Dosage: ?          OTHER DOSE:2000MG1500MG;OTHER FREQUENCY:MORNING EVENING;?
     Route: 048
     Dates: start: 20191018, end: 20200102

REACTIONS (1)
  - Death [None]

NARRATIVE: CASE EVENT DATE: 20200103
